FAERS Safety Report 8389878-7 (Version None)
Quarter: 2012Q2

REPORT INFORMATION
  Report Type: 
  Country: None (occurrence: None)
  Receive Date: 20120529
  Receipt Date: 20120504
  Transmission Date: 20120825
  Serious: Yes (Hospitalization)
  Sender: FDA-Public Use
  Company Number: FR-JNJFOC-20120508321

PATIENT
  Sex: Female

DRUGS (12)
  1. PREVISCAN (FLUINDIONE) [Concomitant]
     Indication: PRODUCT USED FOR UNKNOWN INDICATION
     Dosage: AT 3 OR 4 TIMES A DAY
     Route: 065
  2. LEVOFLOXACIN [Concomitant]
     Indication: PRODUCT USED FOR UNKNOWN INDICATION
     Route: 065
     Dates: start: 20120201, end: 20120209
  3. DURAGESIC-100 [Suspect]
     Dosage: LONG-TERM
     Route: 062
     Dates: end: 20120214
  4. DICODIN [Suspect]
     Indication: PAIN
     Route: 048
     Dates: start: 20120210, end: 20120217
  5. NEXIUM [Concomitant]
     Indication: PRODUCT USED FOR UNKNOWN INDICATION
     Dosage: LONG-TERM
     Route: 048
  6. LASIX [Concomitant]
     Indication: PRODUCT USED FOR UNKNOWN INDICATION
     Dosage: STOPPED DURING HOSPITALIZATION
     Route: 048
     Dates: start: 20120203, end: 20120215
  7. LYRICA [Suspect]
     Indication: PRODUCT USED FOR UNKNOWN INDICATION
     Dosage: LONG-TERM
     Route: 048
  8. AUGMENTIN '125' [Concomitant]
     Indication: PRODUCT USED FOR UNKNOWN INDICATION
     Route: 065
     Dates: start: 20120216, end: 20120302
  9. DURAGESIC-100 [Suspect]
     Indication: PAIN
     Route: 062
     Dates: start: 20120214
  10. MORPHINE SULFATE [Suspect]
     Indication: PAIN
     Dosage: LONG-TERM
     Route: 048
  11. CYMBALTA [Suspect]
     Indication: DEPRESSION
     Dosage: LONG-TERM
     Route: 048
  12. ACETAMINOPHEN [Concomitant]
     Indication: PAIN
     Route: 048

REACTIONS (3)
  - DEPRESSED LEVEL OF CONSCIOUSNESS [None]
  - COMA [None]
  - DISORIENTATION [None]
